FAERS Safety Report 10277908 (Version 1)
Quarter: 2014Q3

REPORT INFORMATION
  Report Type: Spontaneous
  Country: GB (occurrence: GB)
  Receive Date: 20140704
  Receipt Date: 20140704
  Transmission Date: 20150326
  Serious: Yes (Life-Threatening, Hospitalization)
  Sender: FDA-Public Use
  Company Number: GB-RANBAXY-2014RR-82844

PATIENT
  Age: 19 Year
  Sex: Male
  Weight: 117 kg

DRUGS (1)
  1. SERTRALINE [Suspect]
     Active Substance: SERTRALINE HYDROCHLORIDE
     Indication: DEPRESSION
     Dosage: 50MG INITIALLY, THEN INCREASED TO 100MG THEN INCREASED TO 150MG
     Route: 048
     Dates: start: 20140410

REACTIONS (2)
  - Intentional overdose [Not Recovered/Not Resolved]
  - Suicide attempt [Not Recovered/Not Resolved]

NARRATIVE: CASE EVENT DATE: 20140612
